FAERS Safety Report 6370480-3 (Version None)
Quarter: 2009Q3

REPORT INFORMATION
  Report Type: 
  Country: None (occurrence: None)
  Receive Date: 20090921
  Receipt Date: 20090921
  Transmission Date: 20100115
  Serious: Yes (Disabling)
  Sender: FDA-Public Use
  Company Number: None

PATIENT
  Age: 68 Year
  Sex: Male
  Weight: 102.3 kg

DRUGS (2)
  1. LEVAQUIN [Suspect]
     Indication: LUNG DISORDER
     Dosage: 500 MG DAILY ORAL
     Route: 048
     Dates: start: 20090525, end: 20090528
  2. STEROIDS [Concomitant]

REACTIONS (3)
  - ABASIA [None]
  - GAIT DISTURBANCE [None]
  - TENDONITIS [None]
